FAERS Safety Report 4549508-9 (Version None)
Quarter: 2005Q1

REPORT INFORMATION
  Report Type: 
  Country: None (occurrence: None)
  Receive Date: 20050106
  Receipt Date: 20041221
  Transmission Date: 20050727
  Serious: Yes (Hospitalization)
  Sender: FDA-Public Use
  Company Number: DE_990601233

PATIENT
  Age: 30 Year
  Sex: Female

DRUGS (1)
  1. ZYPREXA [Suspect]
     Indication: SCHIZOPHRENIA, CATATONIC TYPE
     Dosage: 30 MG DAY
     Dates: start: 19981123, end: 19990115

REACTIONS (3)
  - GRANULOCYTOPENIA [None]
  - NEUTROPENIA [None]
  - PRESCRIBED OVERDOSE [None]
